FAERS Safety Report 25083560 (Version 1)
Quarter: 2025Q1

REPORT INFORMATION
  Report Type: Spontaneous
  Country: US (occurrence: US)
  Receive Date: 20250317
  Receipt Date: 20250317
  Transmission Date: 20250408
  Serious: No
  Sender: ALVOGEN
  Company Number: None

PATIENT

DRUGS (1)
  1. LISDEXAMFETAMINE DIMESYLATE [Suspect]
     Active Substance: LISDEXAMFETAMINE DIMESYLATE
     Indication: Product used for unknown indication
     Route: 048

REACTIONS (10)
  - Fatigue [Unknown]
  - Brain fog [Unknown]
  - Depressed level of consciousness [Unknown]
  - Mood altered [Unknown]
  - Thinking abnormal [Unknown]
  - Binge eating [Unknown]
  - Impulsive behaviour [Unknown]
  - Condition aggravated [Unknown]
  - Drug ineffective [Unknown]
  - Product substitution issue [Unknown]
